FAERS Safety Report 7537083-6 (Version None)
Quarter: 2011Q2

REPORT INFORMATION
  Report Type: 
  Country: None (occurrence: None)
  Receive Date: 20110609
  Receipt Date: 20110528
  Transmission Date: 20111010
  Serious: Yes (Hospitalization, Other)
  Sender: FDA-Public Use
  Company Number: PHFR2011GB03340

PATIENT
  Sex: Male

DRUGS (1)
  1. CLOZAPINE [Suspect]
     Indication: SCHIZOPHRENIA
     Dosage: 500 MG, QD
     Route: 048
     Dates: start: 20040322

REACTIONS (7)
  - CEREBROVASCULAR ACCIDENT [None]
  - ORAL DISCOMFORT [None]
  - MALAISE [None]
  - DYSSTASIA [None]
  - HYPOKINESIA [None]
  - VIITH NERVE PARALYSIS [None]
  - SOMNOLENCE [None]
